FAERS Safety Report 21188411 (Version 1)
Quarter: 2022Q3

REPORT INFORMATION
  Report Type: Spontaneous
  Country: CA (occurrence: CA)
  Receive Date: 20220809
  Receipt Date: 20220809
  Transmission Date: 20221026
  Serious: Yes (Other)
  Sender: FDA-Public Use
  Company Number: CA-JNJFOC-20220811719

PATIENT
  Age: 42 Year
  Sex: Male
  Weight: 102 kg

DRUGS (4)
  1. REMICADE [Suspect]
     Active Substance: INFLIXIMAB
     Indication: Crohn^s disease
     Route: 041
  2. PLANTAGO INDICA [Concomitant]
  3. QUETIAPINE [Concomitant]
     Active Substance: QUETIAPINE
  4. CHOLECALCIFEROL [Concomitant]
     Active Substance: CHOLECALCIFEROL

REACTIONS (6)
  - Uveitis [Not Recovered/Not Resolved]
  - Abscess [Not Recovered/Not Resolved]
  - Gastrointestinal infection [Not Recovered/Not Resolved]
  - Condition aggravated [Not Recovered/Not Resolved]
  - Off label use [Not Recovered/Not Resolved]
  - Intentional product use issue [Not Recovered/Not Resolved]
